FAERS Safety Report 7314793-7 (Version None)
Quarter: 2011Q1

REPORT INFORMATION
  Report Type: 
  Country: None (occurrence: None)
  Receive Date: 20110225
  Receipt Date: 20101214
  Transmission Date: 20110831
  Serious: No
  Sender: FDA-Public Use
  Company Number: US-MYLANLABS-2010S1022754

PATIENT
  Age: 47 Year
  Sex: Female
  Weight: 49.9 kg

DRUGS (1)
  1. AMNESTEEM [Suspect]
     Route: 048
     Dates: start: 20091001, end: 20100401

REACTIONS (3)
  - WHITE BLOOD CELL COUNT DECREASED [None]
  - PLATELET COUNT DECREASED [None]
  - HLA MARKER STUDY POSITIVE [None]
